FAERS Safety Report 9547483 (Version 1)
Quarter: 2013Q2

REPORT INFORMATION
  Report Type: Spontaneous
  Country: US (occurrence: None)
  Receive Date: 20130524
  Receipt Date: 20130524
  Transmission Date: 20140414
  Serious: Yes (Other)
  Sender: FDA-Public Use
  Company Number: PHEH2013US004362

PATIENT
  Age: 59 Year
  Sex: Female
  Weight: 47.6 kg

DRUGS (1)
  1. GILENYA [Suspect]
     Indication: MULTIPLE SCLEROSIS
     Route: 048
     Dates: start: 20111019

REACTIONS (4)
  - Abdominal pain upper [None]
  - Nausea [None]
  - Influenza [None]
  - Diarrhoea [None]
